FAERS Safety Report 16576654 (Version 2)
Quarter: 2019Q3

REPORT INFORMATION
  Report Type: Spontaneous
  Country: TR (occurrence: TR)
  Receive Date: 20190716
  Receipt Date: 20190801
  Transmission Date: 20191004
  Serious: Yes (Hospitalization)
  Sender: FDA-Public Use
  Company Number: TR-TEVA-2019-TR-1077846

PATIENT
  Age: 62 Year
  Sex: Female

DRUGS (5)
  1. 5-FLUOROURACIL [Suspect]
     Active Substance: FLUOROURACIL
     Indication: OESOPHAGEAL ADENOCARCINOMA
     Dosage: THE WOMAN HAD RECEIVED 4 CYCLES OF FLUOROURACIL, FOLINIC ACID AND OXALIPLATIN
     Route: 065
  2. RIVAROXABAN [Concomitant]
     Active Substance: RIVAROXABAN
     Indication: ATRIAL FIBRILLATION
     Route: 065
  3. FOLINIC ACID [Suspect]
     Active Substance: LEUCOVORIN
     Indication: OESOPHAGEAL ADENOCARCINOMA
     Dosage: THE WOMAN HAD RECEIVED 4 CYCLES OF FLUOROURACIL, FOLINIC ACID AND OXALIPLATIN
     Route: 065
  4. OXALIPLATIN. [Suspect]
     Active Substance: OXALIPLATIN
     Indication: OESOPHAGEAL ADENOCARCINOMA
     Dosage: THE WOMAN HAD RECEIVED 4 CYCLES OF FLUOROURACIL, FOLINIC ACID AND OXALIPLATIN
     Route: 065
  5. DILTIAZEM HYDROCHLORIDE. [Concomitant]
     Active Substance: DILTIAZEM HYDROCHLORIDE
     Indication: ATRIAL FIBRILLATION
     Route: 065

REACTIONS (1)
  - Interstitial lung disease [Recovering/Resolving]
